FAERS Safety Report 7264674-2 (Version None)
Quarter: 2011Q1

REPORT INFORMATION
  Report Type: 
  Country: None (occurrence: None)
  Receive Date: 20110131
  Receipt Date: 20110121
  Transmission Date: 20110831
  Serious: No
  Sender: FDA-Public Use
  Company Number: US-PFIZER INC-2011015503

PATIENT
  Sex: Female
  Weight: 74.83 kg

DRUGS (5)
  1. IBUPROFEN [Concomitant]
     Indication: MIGRAINE
     Dosage: UNK
  2. PRISTIQ [Suspect]
     Indication: ANXIETY
     Dosage: 50 MG, 1X/DAY
     Route: 048
  3. PRISTIQ [Suspect]
     Indication: DEPRESSION
  4. AMOXICILLIN [Suspect]
     Indication: SINUSITIS
     Dosage: 500 MG, 4X/DAY
  5. CAFFEINE [Concomitant]
     Indication: MIGRAINE

REACTIONS (7)
  - BLEPHAROSPASM [None]
  - NASAL CONGESTION [None]
  - DIZZINESS [None]
  - VERTIGO [None]
  - NAUSEA [None]
  - SINUSITIS [None]
  - NASOPHARYNGITIS [None]
